FAERS Safety Report 25188426 (Version 1)
Quarter: 2025Q2

REPORT INFORMATION
  Report Type: Other
  Country: SA (occurrence: SA)
  Receive Date: 20250411
  Receipt Date: 20250411
  Transmission Date: 20250717
  Serious: Yes (Hospitalization, Other)
  Sender: WOODWARD PHARMA SERVICES
  Company Number: SA-WW-2025-40175917

PATIENT
  Sex: Male
  Weight: 1.46 kg

DRUGS (12)
  1. FLUCONAZOLE [Suspect]
     Active Substance: FLUCONAZOLE
     Indication: Prophylaxis
     Route: 065
     Dates: start: 202207, end: 2022
  2. bovine surfactant [Concomitant]
     Indication: Neonatal respiratory distress syndrome
     Route: 065
     Dates: start: 202207, end: 2022
  3. AMPICILLIN [Concomitant]
     Active Substance: AMPICILLIN
     Indication: Prophylaxis
     Route: 065
     Dates: start: 202207, end: 2022
  4. GENTAMICIN [Concomitant]
     Active Substance: GENTAMICIN
     Indication: Prophylaxis
     Route: 065
     Dates: start: 202207, end: 2022
  5. CAFFEINE CITRATE [Concomitant]
     Active Substance: CAFFEINE CITRATE
     Indication: Prophylaxis
     Route: 048
     Dates: start: 202207, end: 2022
  6. EPINEPHRINE [Concomitant]
     Active Substance: EPINEPHRINE
     Indication: Prophylaxis
     Route: 065
     Dates: start: 2022, end: 2022
  7. VITAMIN K [Concomitant]
     Active Substance: PHYTONADIONE
     Indication: Prophylaxis
     Route: 065
     Dates: start: 2022, end: 2022
  8. ACETAMINOPHEN [Concomitant]
     Active Substance: ACETAMINOPHEN
     Indication: Patent ductus arteriosus
     Route: 065
     Dates: start: 2022, end: 2022
  9. SILDENAFIL [Concomitant]
     Active Substance: SILDENAFIL
     Indication: Pulmonary hypertension
     Route: 065
     Dates: start: 2022, end: 2022
  10. VANCOMYCIN [Concomitant]
     Active Substance: VANCOMYCIN
     Indication: Staphylococcal infection
     Route: 065
     Dates: start: 2022, end: 2022
  11. AMIKACIN [Concomitant]
     Active Substance: AMIKACIN
     Indication: Antibiotic therapy
     Route: 065
     Dates: start: 2022, end: 2022
  12. MEROPENEM [Concomitant]
     Active Substance: MEROPENEM
     Indication: Klebsiella infection
     Route: 065
     Dates: start: 2022, end: 2022

REACTIONS (2)
  - Cryptococcal fungaemia [Recovered/Resolved]
  - Drug ineffective [Unknown]

NARRATIVE: CASE EVENT DATE: 20220101
